FAERS Safety Report 9405048 (Version 2)
Quarter: 2013Q3

REPORT INFORMATION
  Report Type: Spontaneous
  Country: JP (occurrence: JP)
  Receive Date: 20130717
  Receipt Date: 20130809
  Transmission Date: 20140515
  Serious: Yes (Other)
  Sender: FDA-Public Use
  Company Number: JP-UCBSA-091598

PATIENT
  Age: 74 Year
  Sex: Female

DRUGS (5)
  1. CIMZIA [Suspect]
     Indication: RHEUMATOID ARTHRITIS
     Dosage: 200 MG SYRINGE
     Route: 058
     Dates: start: 2013, end: 2013
  2. RHEUMATREX [Concomitant]
     Route: 048
  3. CELECOX [Concomitant]
     Route: 048
  4. RIMATIL [Concomitant]
     Route: 048
  5. PREDONINE [Concomitant]
     Route: 048

REACTIONS (1)
  - Pneumonia [Recovered/Resolved]
